FAERS Safety Report 14675254 (Version 1)
Quarter: 2018Q1

REPORT INFORMATION
  Report Type: Spontaneous
  Country: US (occurrence: US)
  Receive Date: 20180323
  Receipt Date: 20180323
  Transmission Date: 20180509
  Serious: Yes (Death, Hospitalization)
  Sender: FDA-Public Use
  Company Number: US-IMPAX LABORATORIES, INC-2018-IPXL-00888

PATIENT
  Age: 29 Year
  Sex: Male

DRUGS (3)
  1. ALCOHOL. [Suspect]
     Active Substance: ALCOHOL
     Indication: SUICIDE ATTEMPT
     Dosage: UNK
     Route: 065
  2. ADRENACLICK [Suspect]
     Active Substance: EPINEPHRINE
     Indication: PULSELESS ELECTRICAL ACTIVITY
     Dosage: 2 MG, UNK
     Route: 042
  3. METFORMIN HYDROCHLORIDE ER [Suspect]
     Active Substance: METFORMIN HYDROCHLORIDE
     Indication: SUICIDE ATTEMPT
     Dosage: OVER 60 G ( BETWEEN 64 AND 85 GRAMS), UNK
     Route: 048

REACTIONS (14)
  - Pulseless electrical activity [Fatal]
  - Aggression [Unknown]
  - Left ventricular dysfunction [Fatal]
  - Intentional overdose [Fatal]
  - Ventricular tachycardia [Fatal]
  - Unresponsive to stimuli [Fatal]
  - Hyperglycaemia [Fatal]
  - Coagulopathy [Fatal]
  - Lactic acidosis [Fatal]
  - Completed suicide [Fatal]
  - Aspiration [Fatal]
  - Anal incontinence [Unknown]
  - Drug ineffective [Unknown]
  - Thirst [Unknown]
